FAERS Safety Report 5076682-0 (Version None)
Quarter: 2006Q3

REPORT INFORMATION
  Report Type: 
  Country: None (occurrence: None)
  Receive Date: 20060810
  Receipt Date: 20060730
  Transmission Date: 20061208
  Serious: Yes (Other)
  Sender: FDA-Public Use
  Company Number: US-ROCHE-457730

PATIENT
  Age: 59 Year
  Sex: Male

DRUGS (5)
  1. VALCYTE [Suspect]
     Route: 048
     Dates: start: 20060405, end: 20060707
  2. PROGRAF [Concomitant]
     Route: 048
     Dates: start: 20060405
  3. PREDNISONE [Concomitant]
     Route: 048
     Dates: start: 20060615
  4. CELLCEPT [Concomitant]
     Route: 048
     Dates: start: 20060405
  5. CIPRO [Concomitant]
     Route: 048
     Dates: end: 20060707

REACTIONS (3)
  - ANAEMIA [None]
  - LEUKAEMIA [None]
  - MYELOCYTE COUNT INCREASED [None]
